FAERS Safety Report 8075746-7 (Version None)
Quarter: 2012Q1

REPORT INFORMATION
  Report Type: 
  Country: None (occurrence: None)
  Receive Date: 20120127
  Receipt Date: 20120123
  Transmission Date: 20120608
  Serious: No
  Sender: FDA-Public Use
  Company Number: US-BAYER-2012-008397

PATIENT
  Age: 87 Year
  Weight: 73 kg

DRUGS (5)
  1. MELOXICAM [Concomitant]
  2. VITAMIN B-12 [Concomitant]
  3. FOLIC ACID [Concomitant]
  4. ALEVE (CAPLET) [Suspect]
     Dosage: UNK
  5. ASPIRIN [Concomitant]

REACTIONS (1)
  - NO ADVERSE EVENT [None]
